FAERS Safety Report 5330677-8 (Version None)
Quarter: 2007Q2

REPORT INFORMATION
  Report Type: 
  Country: None (occurrence: None)
  Receive Date: 20070522
  Receipt Date: 20070511
  Transmission Date: 20071010
  Serious: Yes (Hospitalization, Other)
  Sender: FDA-Public Use
  Company Number: PHEH2007US07365

PATIENT
  Age: 56 Year
  Sex: Female
  Weight: 65.759 kg

DRUGS (10)
  1. COMBIPATCH [Suspect]
     Indication: MENOPAUSE
     Dosage: .05/.14
     Route: 062
     Dates: start: 19990204, end: 19990801
  2. WELLBUTRIN [Concomitant]
     Indication: SMOKING CESSATION THERAPY
     Dosage: 150 MG, UNK
     Route: 048
     Dates: start: 19980101
  3. ATENOLOL [Concomitant]
     Dosage: 50 MG, BID
     Route: 048
  4. RANITIDINE [Concomitant]
     Dosage: 150 MG, BID
     Route: 048
  5. ZOLOFT [Concomitant]
     Indication: DEPRESSION
     Dosage: 25 MG, BID
     Route: 048
  6. NITROGLYCERIN [Concomitant]
     Indication: ANGINA PECTORIS
     Dosage: 0.4 MG, PRN
     Route: 060
  7. PROVERA [Suspect]
     Indication: MENOPAUSE
     Dosage: 2.5 MG, UNK
     Route: 048
     Dates: start: 19970815, end: 19971201
  8. PREMARIN [Suspect]
     Indication: MENOPAUSE
     Dosage: 0.625 MG, QD
     Route: 048
     Dates: start: 19990923, end: 19991001
  9. MEDROXYPROGESTERONE [Suspect]
     Indication: MENOPAUSE
     Dosage: 2.5 MG, QD
     Route: 048
     Dates: start: 19990923, end: 20020419
  10. PREMPRO [Suspect]
     Indication: MENOPAUSE
     Dosage: 2.5 MG, UNK
     Route: 048
     Dates: start: 19970815, end: 19990101

REACTIONS (15)
  - ALOPECIA [None]
  - BLISTER [None]
  - BREAST CANCER [None]
  - BREAST MASS [None]
  - BREAST RECONSTRUCTION [None]
  - CELLULITIS [None]
  - DEPRESSION [None]
  - ERYTHEMA [None]
  - IMMUNODEFICIENCY [None]
  - MODIFIED RADICAL MASTECTOMY [None]
  - RADIOTHERAPY [None]
  - SCAR [None]
  - SKIN DISCOLOURATION [None]
  - SKIN EXFOLIATION [None]
  - TENDERNESS [None]
